FAERS Safety Report 25667319 (Version 5)
Quarter: 2025Q4

REPORT INFORMATION
  Report Type: Spontaneous
  Country: CO (occurrence: CO)
  Receive Date: 20250811
  Receipt Date: 20251016
  Transmission Date: 20260118
  Serious: No
  Sender: PFIZER
  Company Number: CO-PFIZER INC-PV202500095750

PATIENT
  Age: 12 Year
  Sex: Male
  Weight: 30 kg

DRUGS (1)
  1. GENOTROPIN [Suspect]
     Active Substance: SOMATROPIN
     Indication: Short stature
     Dosage: 1 MG, DAILY

REACTIONS (3)
  - Device information output issue [Unknown]
  - Drug dose omission by device [Unknown]
  - Off label use [Unknown]

NARRATIVE: CASE EVENT DATE: 20250803
